FAERS Safety Report 8041171-8 (Version None)
Quarter: 2012Q1

REPORT INFORMATION
  Report Type: 
  Country: None (occurrence: None)
  Receive Date: 20120112
  Receipt Date: 20120103
  Transmission Date: 20120608
  Serious: Yes (Other)
  Sender: FDA-Public Use
  Company Number: NL-BRISTOL-MYERS SQUIBB COMPANY-16333791

PATIENT
  Age: 72 Year
  Sex: Female

DRUGS (7)
  1. METOPROLOL SUCCINATE [Concomitant]
  2. INSULIN ASPART [Concomitant]
  3. OMEPRAZOLE [Concomitant]
  4. METFORMIN HCL [Suspect]
  5. DYAZIDE [Concomitant]
  6. PANTOPRAZOLE [Concomitant]
  7. ATORVASTATIN [Concomitant]

REACTIONS (5)
  - OESOPHAGEAL CANDIDIASIS [None]
  - GASTRITIS [None]
  - OEDEMA PERIPHERAL [None]
  - BLOOD CREATININE DECREASED [None]
  - HYPOGLYCAEMIA [None]
